FAERS Safety Report 15633436 (Version 1)
Quarter: 2018Q4

REPORT INFORMATION
  Report Type: Spontaneous
  Country: US (occurrence: US)
  Receive Date: 20181116
  Receipt Date: 20181116
  Transmission Date: 20190205
  Serious: No
  Sender: FDA-Public Use
  Company Number: None

PATIENT

DRUGS (1)
  1. TAXOTERE [Suspect]
     Active Substance: DOCETAXEL

REACTIONS (8)
  - Madarosis [None]
  - Weight decreased [None]
  - Dysgeusia [None]
  - Fatigue [None]
  - Alopecia [None]
  - Decreased appetite [None]
  - Onychomadesis [None]
  - Skin exfoliation [None]
